FAERS Safety Report 8605508-0 (Version None)
Quarter: 2012Q3

REPORT INFORMATION
  Report Type: 
  Country: None (occurrence: None)
  Receive Date: 20120807
  Receipt Date: 20120730
  Transmission Date: 20120928
  Serious: Yes (Hospitalization, Other)
  Sender: FDA-Public Use
  Company Number: GER/UKI/12/0024921

PATIENT
  Age: 62 Year
  Sex: Female
  Weight: 91.3 kg

DRUGS (7)
  1. BISOPROLOL FUMARATE [Concomitant]
  2. CLOPIDOGREL [Concomitant]
  3. ATORVASTATIN CALCIUM [Suspect]
     Indication: PRODUCT USED FOR UNKNOWN INDICATION
     Dosage: 80 MG, 1 IN 1 D, ORAL
     Route: 048
     Dates: start: 20120612, end: 20120616
  4. LIPITOR [Concomitant]
  5. RAMIPRIL [Concomitant]
  6. AMLODIPINE [Concomitant]
  7. OMEPRAZOLE [Concomitant]

REACTIONS (2)
  - PRODUCT SUBSTITUTION ISSUE [None]
  - BLOOD PRESSURE INCREASED [None]
